FAERS Safety Report 6468941-1 (Version None)
Quarter: 2009Q4

REPORT INFORMATION
  Report Type: 
  Country: None (occurrence: None)
  Receive Date: 20091203
  Receipt Date: 20090708
  Transmission Date: 20100525
  Serious: Yes (Other)
  Sender: FDA-Public Use
  Company Number: US-ELI_LILLY_AND_COMPANY-US200601003386

PATIENT
  Sex: Male
  Weight: 132.88 kg

DRUGS (4)
  1. ZYPREXA [Suspect]
     Indication: BIPOLAR DISORDER
     Dosage: 10 MG, DAILY (1/D)
     Route: 048
     Dates: start: 19980301
  2. ZYPREXA [Suspect]
     Dosage: 5 MG, UNK
     Dates: start: 19980610
  3. RISPERDAL [Concomitant]
  4. TRAZODIL [Concomitant]

REACTIONS (11)
  - BLOOD CHOLESTEROL INCREASED [None]
  - BLOOD TRIGLYCERIDES INCREASED [None]
  - CHEST PAIN [None]
  - HEPATITIS C [None]
  - HUNGER [None]
  - LETHARGY [None]
  - METABOLIC DISORDER [None]
  - MITRAL VALVE PROLAPSE [None]
  - OBESITY [None]
  - TYPE 2 DIABETES MELLITUS [None]
  - WEIGHT INCREASED [None]
